FAERS Safety Report 11302353 (Version 2)
Quarter: 2015Q3

REPORT INFORMATION
  Report Type: Spontaneous
  Country: US (occurrence: US)
  Receive Date: 20150723
  Receipt Date: 20150929
  Transmission Date: 20151125
  Serious: No
  Sender: FDA-Public Use
  Company Number: US-PFIZER INC-2015240113

PATIENT
  Age: 60 Year
  Sex: Female

DRUGS (1)
  1. IBRANCE [Suspect]
     Active Substance: PALBOCICLIB
     Indication: BREAST CANCER
     Dosage: 125 MG, DAILY (1 CAPSULE DAILY FOR 3 WEEKS THEN 1 WEEK OFF THEN RESTART CYCLE)
     Route: 048

REACTIONS (2)
  - Oropharyngeal pain [Unknown]
  - Oral pain [Recovering/Resolving]
